FAERS Safety Report 8900994 (Version 1)
Quarter: 2012Q4

REPORT INFORMATION
  Report Type: 
  Country: US (occurrence: US)
  Receive Date: 20121109
  Receipt Date: 20121109
  Transmission Date: 20130627
  Serious: Yes (Hospitalization)
  Sender: FDA-Public Use
  Company Number: US-ELI_LILLY_AND_COMPANY-US201211000707

PATIENT
  Age: 19 Year
  Sex: Female

DRUGS (4)
  1. HUMALOG LISPRO [Suspect]
     Indication: TYPE 1 DIABETES MELLITUS
     Dosage: UNK UNK, prn
     Dates: start: 2010
  2. LANTUS [Concomitant]
     Dosage: 25 u, each morning
  3. LANTUS [Concomitant]
     Dosage: 5 u, each evening
  4. NOVOLOG [Concomitant]
     Indication: TYPE 1 DIABETES MELLITUS
     Dosage: UNK, unknown

REACTIONS (3)
  - Infection [Unknown]
  - Vomiting [Unknown]
  - Blood glucose increased [Unknown]
